FAERS Safety Report 18888284 (Version 1)
Quarter: 2021Q1

REPORT INFORMATION
  Report Type: Spontaneous
  Country: US (occurrence: US)
  Receive Date: 20210212
  Receipt Date: 20210212
  Transmission Date: 20210420
  Serious: Yes (Other)
  Sender: FDA-Public Use
  Company Number: US-NOVOPROD-786104

PATIENT
  Sex: Male

DRUGS (2)
  1. VICTOZA [Suspect]
     Active Substance: LIRAGLUTIDE
     Indication: TYPE 2 DIABETES MELLITUS
     Dosage: UNK
     Route: 065
     Dates: end: 2020
  2. LANTUS [Concomitant]
     Active Substance: INSULIN GLARGINE
     Indication: TYPE 2 DIABETES MELLITUS
     Dosage: UNK
     Route: 065
     Dates: start: 2020

REACTIONS (12)
  - Ear neoplasm malignant [Unknown]
  - Blood glucose fluctuation [Unknown]
  - Kyphosis [Not Recovered/Not Resolved]
  - Knee deformity [Not Recovered/Not Resolved]
  - Aggression [Unknown]
  - Gait disturbance [Not Recovered/Not Resolved]
  - Product communication issue [Unknown]
  - Product dose omission in error [Unknown]
  - Somnolence [Unknown]
  - Deafness unilateral [Not Recovered/Not Resolved]
  - Muscle atrophy [Not Recovered/Not Resolved]
  - Asthenia [Not Recovered/Not Resolved]

NARRATIVE: CASE EVENT DATE: 2020
